FAERS Safety Report 9738581 (Version 2)
Quarter: 2013Q4

REPORT INFORMATION
  Report Type: Report from Study
  Country: DE (occurrence: DE)
  Receive Date: 20131209
  Receipt Date: 20131209
  Transmission Date: 20140711
  Serious: Yes (Other)
  Sender: FDA-Public Use
  Company Number: DE-BEH-2012030667

PATIENT
  Age: 72 Year
  Sex: Female
  Weight: 60 kg

DRUGS (17)
  1. PRIVIGEN [Suspect]
     Indication: IMMUNODEFICIENCY
     Route: 042
     Dates: start: 20111207, end: 20111207
  2. PRIVIGEN [Suspect]
     Route: 042
     Dates: start: 20120524, end: 20120524
  3. PRIVIGEN [Suspect]
     Route: 042
     Dates: start: 20120717, end: 20120717
  4. PRIVIGEN [Suspect]
     Route: 042
     Dates: start: 20120920, end: 20120920
  5. CORTICOID [Concomitant]
  6. MTX [Concomitant]
  7. BONVIVA [Concomitant]
     Route: 042
  8. CALCIUM [Concomitant]
  9. VITAMIN D [Concomitant]
  10. FRAGMIN P [Concomitant]
  11. CARMEN [Concomitant]
  12. RAMIPRIL [Concomitant]
  13. PANTOZOL [Concomitant]
  14. TRUSOPT AT [Concomitant]
  15. BERODUAL [Concomitant]
  16. NITRO [Concomitant]
  17. PENTALONG [Concomitant]

REACTIONS (5)
  - Blood pressure increased [Recovered/Resolved]
  - Headache [Recovered/Resolved]
  - Urinary tract infection [Recovered/Resolved]
  - Urinary tract infection [Recovered/Resolved]
  - Urinary tract infection [Recovered/Resolved]
